FAERS Safety Report 8489408-5 (Version None)
Quarter: 2012Q3

REPORT INFORMATION
  Report Type: 
  Country: None (occurrence: None)
  Receive Date: 20120705
  Receipt Date: 20120627
  Transmission Date: 20120928
  Serious: Yes (Hospitalization, Other)
  Sender: FDA-Public Use
  Company Number: DE-BRISTOL-MYERS SQUIBB COMPANY-16546939

PATIENT
  Age: 42 Year
  Sex: Female
  Weight: 106 kg

DRUGS (7)
  1. ORENCIA [Suspect]
     Indication: POLYARTHRITIS
     Dosage: RECEIVED FOR 7 TO 8 MONTHS,1DF: 3X250 MG
     Route: 042
     Dates: start: 20110601, end: 20120301
  2. ORENCIA [Suspect]
     Indication: RHEUMATOID ARTHRITIS
     Dosage: RECEIVED FOR 7 TO 8 MONTHS,1DF: 3X250 MG
     Route: 042
     Dates: start: 20110601, end: 20120301
  3. OXYGEN [Concomitant]
     Route: 045
  4. PROPOFOL [Concomitant]
     Dosage: FRACTIONATED
  5. METHOTREXATE [Suspect]
     Indication: RHEUMATOID ARTHRITIS
     Route: 048
     Dates: start: 20100101
  6. PREDNISOLONE [Concomitant]
     Indication: POLYARTHRITIS
     Dosage: 1 DF: 2 X 5 MG
     Dates: start: 20060101
  7. MIDAZOLAM [Concomitant]

REACTIONS (4)
  - HAEMORRHOIDS [None]
  - PULMONARY EMBOLISM [None]
  - GASTRIC NEOPLASM [None]
  - VENOUS THROMBOSIS [None]
